FAERS Safety Report 6891811-1 (Version None)
Quarter: 2010Q3

REPORT INFORMATION
  Report Type: 
  Country: None (occurrence: None)
  Receive Date: 20100731
  Receipt Date: 20071204
  Transmission Date: 20110219
  Serious: No
  Sender: FDA-Public Use
  Company Number: US-PFIZER INC-2007090542

PATIENT
  Age: 53 Year
  Sex: Male
  Weight: 88.45 kg

DRUGS (10)
  1. NEURONTIN [Suspect]
     Indication: SCIATICA
     Dates: start: 20020701
  2. FLEXERIL [Concomitant]
  3. PROVENTIL TABLET [Concomitant]
  4. TOPROL-XL [Concomitant]
  5. SERTRALINE HCL [Concomitant]
  6. NEXIUM [Concomitant]
  7. LISINOPRIL [Concomitant]
  8. SIMVASTATIN [Concomitant]
  9. ZETIA [Concomitant]
  10. VICODIN [Concomitant]

REACTIONS (1)
  - DRUG INEFFECTIVE [None]
